FAERS Safety Report 6771392-3 (Version None)
Quarter: 2010Q2

REPORT INFORMATION
  Report Type: 
  Country: None (occurrence: None)
  Receive Date: 20100616
  Receipt Date: 20100607
  Transmission Date: 20101027
  Serious: Yes (Other)
  Sender: FDA-Public Use
  Company Number: FR-B.I. PHARMACEUTICALS,INC./RIDGEFIELD-2010-FF-00482FF

PATIENT
  Age: 64 Year
  Sex: Female

DRUGS (5)
  1. MICARDIS [Suspect]
     Route: 048
     Dates: start: 20080901, end: 20100501
  2. LEVOTHYROXINE SODIUM [Concomitant]
  3. TEMERIT [Concomitant]
  4. EFFEXOR [Concomitant]
  5. AERIUS [Concomitant]

REACTIONS (4)
  - ALANINE AMINOTRANSFERASE INCREASED [None]
  - ASPARTATE AMINOTRANSFERASE INCREASED [None]
  - GAMMA-GLUTAMYLTRANSFERASE INCREASED [None]
  - HEPATOTOXICITY [None]
